FAERS Safety Report 25385989 (Version 1)
Quarter: 2025Q2

REPORT INFORMATION
  Report Type: Report from Study
  Country: IT (occurrence: IT)
  Receive Date: 20250602
  Receipt Date: 20250602
  Transmission Date: 20250717
  Serious: Yes (Death, Life-Threatening, Hospitalization)
  Sender: RANBAXY
  Company Number: IT-SUN PHARMACEUTICAL INDUSTRIES LTD-2025R1-510070

PATIENT
  Age: 77 Year

DRUGS (9)
  1. WARFARIN [Suspect]
     Active Substance: WARFARIN
     Indication: Pulmonary embolism
     Route: 065
     Dates: start: 20140911
  2. WARFARIN [Suspect]
     Active Substance: WARFARIN
     Route: 065
     Dates: start: 20140918
  3. WARFARIN [Suspect]
     Active Substance: WARFARIN
     Route: 065
     Dates: start: 20140919
  4. WARFARIN [Suspect]
     Active Substance: WARFARIN
     Route: 065
     Dates: start: 20140920
  5. BEMIPARIN [Suspect]
     Active Substance: BEMIPARIN
     Indication: Pulmonary embolism
     Route: 065
     Dates: start: 20140911
  6. BEMIPARIN [Suspect]
     Active Substance: BEMIPARIN
     Route: 065
     Dates: start: 20140912
  7. BEMIPARIN [Suspect]
     Active Substance: BEMIPARIN
     Route: 065
     Dates: start: 20140914
  8. VITAMIN K [Suspect]
     Active Substance: PHYTONADIONE
     Indication: Pulmonary embolism
     Route: 065
     Dates: start: 20140921
  9. PROTHROMBIN [Suspect]
     Active Substance: PROTHROMBIN
     Indication: Pulmonary embolism
     Route: 065
     Dates: start: 20140921

REACTIONS (1)
  - Treatment failure [Fatal]
